FAERS Safety Report 9393412 (Version 1)
Quarter: 2013Q3

REPORT INFORMATION
  Report Type: Spontaneous
  Country: GB (occurrence: None)
  Receive Date: 20130705
  Receipt Date: 20130705
  Transmission Date: 20140515
  Serious: Yes (Hospitalization)
  Sender: FDA-Public Use
  Company Number: GB-023363

PATIENT
  Age: 71 Year
  Sex: Male

DRUGS (10)
  1. CHLORAMBUCIL [Suspect]
     Indication: CHRONIC LYMPHOCYTIC LEUKAEMIA
     Dosage: 22MG CYCLIC (DAYS 1-7 EVERY 4 WEEKS) (22 MILLIGRAM), ORAL
     Dates: start: 20081125, end: 20090818
  2. MABTHERA [Suspect]
     Indication: CHRONIC LYMPHOCYTIC LEUKAEMIA
     Route: 042
     Dates: start: 20081125, end: 20090420
  3. METOCLOPRAMIDE (METOCLOPRAMIDE) [Concomitant]
  4. FLUCONAZOLE (FLUCONAZOLE) [Concomitant]
  5. LANSOPRAZOLE (LANSOPRAZOLE) [Concomitant]
  6. ACICLOVIR (ACICLOVIR) [Concomitant]
  7. CO-TRIMOXAZOLE (SULFAMETHOXAZOLE AND TRIMETHOPRIM) [Concomitant]
  8. CO-DYDRAMOL (DIHYDROCODEINE, COMBINATIONS) [Concomitant]
  9. AMLODIPINE (AMLODIPINE) [Concomitant]
  10. RAMIPRIL (RAMIPRIL) [Concomitant]

REACTIONS (2)
  - Neutropenic sepsis [None]
  - Clostridium test positive [None]
